FAERS Safety Report 13300331 (Version 2)
Quarter: 2017Q1

REPORT INFORMATION
  Report Type: Spontaneous
  Country: US (occurrence: US)
  Receive Date: 20170307
  Receipt Date: 20170329
  Transmission Date: 20170428
  Serious: No
  Sender: FDA-Public Use
  Company Number: PHEH2017US006697

PATIENT
  Sex: Female

DRUGS (1)
  1. ZOFRAN ODT [Suspect]
     Active Substance: ONDANSETRON HYDROCHLORIDE
     Indication: PRODUCT USED FOR UNKNOWN INDICATION
     Route: 048

REACTIONS (6)
  - Emotional distress [Unknown]
  - Maternal exposure during pregnancy [Unknown]
  - Injury [Unknown]
  - Anxiety [Unknown]
  - Pain [Unknown]
  - Product use issue [Unknown]
